FAERS Safety Report 10594497 (Version 3)
Quarter: 2017Q2

REPORT INFORMATION
  Report Type: Report from Study
  Country: DE (occurrence: DE)
  Receive Date: 20141120
  Receipt Date: 20170407
  Transmission Date: 20170829
  Serious: Yes (Death, Hospitalization, Other)
  Sender: FDA-Public Use
  Company Number: DE-ROCHE-1490586

PATIENT
  Age: 75 Year
  Sex: Male

DRUGS (20)
  1. CYCLOPHOSPHAMID [Concomitant]
     Active Substance: CYCLOPHOSPHAMIDE
     Dosage: 3RD CYCLE
     Route: 042
     Dates: start: 20130918
  2. ALEMTUZUMAB [Concomitant]
     Active Substance: ALEMTUZUMAB
     Indication: POST TRANSPLANT LYMPHOPROLIFERATIVE DISORDER
     Route: 058
     Dates: start: 20130918
  3. DOXORUBICIN [Concomitant]
     Active Substance: DOXORUBICIN
     Dosage: 3RD CYCLE
     Route: 042
     Dates: start: 20130918
  4. CYCLOPHOSPHAMID [Concomitant]
     Active Substance: CYCLOPHOSPHAMIDE
     Indication: POST TRANSPLANT LYMPHOPROLIFERATIVE DISORDER
     Dosage: 1ST CYCLE
     Route: 042
     Dates: start: 20130802
  5. ALEMTUZUMAB [Concomitant]
     Active Substance: ALEMTUZUMAB
     Route: 058
  6. DOXORUBICIN [Concomitant]
     Active Substance: DOXORUBICIN
     Route: 042
  7. PREDNISOLON [Suspect]
     Active Substance: PREDNISOLONE
     Indication: PRODUCT USED FOR UNKNOWN INDICATION
     Route: 048
  8. ETOPOSIDE. [Concomitant]
     Active Substance: ETOPOSIDE
     Indication: POST TRANSPLANT LYMPHOPROLIFERATIVE DISORDER
     Dosage: 1ST CYCLE
     Route: 042
     Dates: start: 20130802
  9. ETOPOSIDE. [Concomitant]
     Active Substance: ETOPOSIDE
     Route: 042
  10. DOXORUBICIN [Concomitant]
     Active Substance: DOXORUBICIN
     Indication: POST TRANSPLANT LYMPHOPROLIFERATIVE DISORDER
     Dosage: 1ST CYCLE
     Route: 042
     Dates: start: 20130802
  11. RITUXIMAB [Suspect]
     Active Substance: RITUXIMAB
     Indication: POST TRANSPLANT LYMPHOPROLIFERATIVE DISORDER
     Dosage: 1ST CYCLE
     Route: 042
     Dates: start: 20130802
  12. RITUXIMAB [Suspect]
     Active Substance: RITUXIMAB
     Route: 042
     Dates: start: 20130826
  13. DEXAMETHASONE. [Concomitant]
     Active Substance: DEXAMETHASONE
     Indication: POST TRANSPLANT LYMPHOPROLIFERATIVE DISORDER
     Dosage: 3RD CYCLE
     Route: 042
     Dates: start: 20130918
  14. DEXAMETHASONE. [Concomitant]
     Active Substance: DEXAMETHASONE
     Route: 048
  15. VINCRISTIN [Concomitant]
     Active Substance: VINCRISTINE
     Indication: POST TRANSPLANT LYMPHOPROLIFERATIVE DISORDER
     Dosage: 1ST CYCLE
     Route: 042
     Dates: start: 20130802
  16. VINCRISTIN [Concomitant]
     Active Substance: VINCRISTINE
     Dosage: 3RD CYCLE
     Route: 042
     Dates: start: 20130918
  17. ETOPOSIDE. [Concomitant]
     Active Substance: ETOPOSIDE
     Dosage: 3RD CYCLE
     Route: 042
     Dates: start: 20130918
  18. RITUXIMAB [Suspect]
     Active Substance: RITUXIMAB
     Dosage: 3RD CYCLE
     Route: 042
     Dates: start: 20130918
  19. RITUXIMAB [Suspect]
     Active Substance: RITUXIMAB
     Dosage: 1ST CYCLE
     Route: 042
     Dates: start: 20130802
  20. ALEMTUZUMAB [Concomitant]
     Active Substance: ALEMTUZUMAB
     Route: 058

REACTIONS (10)
  - Platelet count decreased [Unknown]
  - Pyrexia [Recovered/Resolved]
  - Gangrene [Unknown]
  - Skin ulcer [Recovered/Resolved]
  - Arterial occlusive disease [Unknown]
  - Haemoglobin decreased [Unknown]
  - Post transplant lymphoproliferative disorder [Fatal]
  - Polyneuropathy [Recovered/Resolved]
  - White blood cell count decreased [Unknown]
  - Cellulitis [Recovered/Resolved]

NARRATIVE: CASE EVENT DATE: 20130820
